FAERS Safety Report 19854556 (Version 1)
Quarter: 2021Q3

REPORT INFORMATION
  Report Type: Spontaneous
  Country: US (occurrence: US)
  Receive Date: 20210920
  Receipt Date: 20210920
  Transmission Date: 20211014
  Serious: No
  Sender: FDA-Public Use
  Company Number: US-SA-2021SA305637

PATIENT
  Sex: Female

DRUGS (4)
  1. SINGULAIR [Concomitant]
     Active Substance: MONTELUKAST SODIUM
  2. HYDROXYZINE HYDROCHLORIDE. [Concomitant]
     Active Substance: HYDROXYZINE HYDROCHLORIDE
     Indication: ANXIETY DISORDER
  3. CLARITIN [Concomitant]
     Active Substance: LORATADINE
  4. DUPIXENT [Suspect]
     Active Substance: DUPILUMAB
     Indication: ANXIETY DISORDER
     Dosage: 300 MG
     Route: 058

REACTIONS (1)
  - Product use in unapproved indication [Unknown]
